FAERS Safety Report 6689859-5 (Version None)
Quarter: 2010Q2

REPORT INFORMATION
  Report Type: 
  Country: None (occurrence: None)
  Receive Date: 20100421
  Receipt Date: 20100412
  Transmission Date: 20101027
  Serious: Yes (Other)
  Sender: FDA-Public Use
  Company Number: SE-BRISTOL-MYERS SQUIBB COMPANY-15068869

PATIENT
  Sex: Male

DRUGS (2)
  1. WARFARIN SODIUM [Suspect]
  2. COCILLANA-ETYFIN [Interacting]
     Indication: COUGH

REACTIONS (2)
  - DRUG INTERACTION [None]
  - PROTHROMBIN TIME RATIO INCREASED [None]
